FAERS Safety Report 8270431-0 (Version None)
Quarter: 2012Q2

REPORT INFORMATION
  Report Type: 
  Country: None (occurrence: None)
  Receive Date: 20120410
  Receipt Date: 20120403
  Transmission Date: 20120825
  Serious: Yes (Other)
  Sender: FDA-Public Use
  Company Number: CH-B.I. PHARMACEUTICALS,INC./RIDGEFIELD-2012-AP-00280SI

PATIENT
  Age: 11 Year
  Sex: Male
  Weight: 30 kg

DRUGS (8)
  1. OMEZOL-MEPHA [Concomitant]
     Dosage: 105 MG
     Route: 042
  2. NALBUPHIN ORPHA [Concomitant]
     Dosage: 18 MG
     Route: 042
  3. NERVIFENE [Concomitant]
     Dosage: 2700 MG
  4. DIAZEPAM [Concomitant]
     Dosage: 10 MG
     Route: 054
  5. MIDAZOLAM [Concomitant]
     Dosage: PERMANENT DRIP INFUSION: 0.05 MG/KG/H
     Route: 042
  6. ATROVENT [Suspect]
     Indication: PNEUMONIA
     Dosage: 750 MCG
     Route: 055
     Dates: start: 20120116, end: 20120119
  7. AMOXICILLIN AND CLAVULANATE POTASSIUM [Concomitant]
     Dosage: 1000 MG
     Route: 042
  8. LIORESAL [Concomitant]
     Dosage: 40 MG

REACTIONS (3)
  - MYDRIASIS [None]
  - EYELID OEDEMA [None]
  - CONJUNCTIVAL OEDEMA [None]
